FAERS Safety Report 8541649-4 (Version None)
Quarter: 2012Q3

REPORT INFORMATION
  Report Type: 
  Country: None (occurrence: None)
  Receive Date: 20120726
  Receipt Date: 20120723
  Transmission Date: 20120928
  Serious: Yes (Hospitalization)
  Sender: FDA-Public Use
  Company Number: US-GLAXOSMITHKLINE-A0986366A

PATIENT
  Age: 41 Year
  Sex: Male

DRUGS (5)
  1. RENVELA [Concomitant]
  2. COREG [Suspect]
     Indication: HYPERTENSION
     Dosage: 25MG PER DAY
     Route: 048
  3. LISINOPRIL [Concomitant]
  4. MINOXIDIL [Concomitant]
  5. UNSPECIFIED MEDICATION [Concomitant]

REACTIONS (1)
  - HYPERTENSION [None]
